FAERS Safety Report 22631507 (Version 1)
Quarter: 2023Q2

REPORT INFORMATION
  Report Type: Spontaneous
  Country: GB (occurrence: GB)
  Receive Date: 20230623
  Receipt Date: 20230623
  Transmission Date: 20230722
  Serious: Yes (Other)
  Sender: FDA-Public Use
  Company Number: GB-002147023-NVSC2023GB137818

PATIENT
  Age: 72 Year
  Sex: Female

DRUGS (2)
  1. DEXAMETHASONE [Suspect]
     Active Substance: DEXAMETHASONE
     Indication: Corneal dystrophy
     Dosage: UNK, QID (FOR LEFT AND RIGHT EYE)
     Route: 061
  2. DEXAMETHASONE [Suspect]
     Active Substance: DEXAMETHASONE
     Dosage: UNK, QD (FOR LEFT AND RIGHT EYE)
     Route: 061

REACTIONS (2)
  - Ocular hypertension [Unknown]
  - Product use in unapproved indication [Unknown]
